FAERS Safety Report 6950144-5 (Version None)
Quarter: 2010Q3

REPORT INFORMATION
  Report Type: 
  Country: None (occurrence: None)
  Receive Date: 20100828
  Receipt Date: 20100222
  Transmission Date: 20110219
  Serious: No
  Sender: FDA-Public Use
  Company Number: US-ABBOTT-10P-163-0622535-00

PATIENT
  Sex: Female
  Weight: 5.404 kg

DRUGS (5)
  1. NIASPAN [Suspect]
     Indication: BLOOD CHOLESTEROL INCREASED
     Dates: start: 20100104, end: 20100121
  2. COUMADIN [Concomitant]
     Indication: CARDIAC FAILURE CONGESTIVE
  3. COUMADIN [Concomitant]
  4. ALBUTEROL [Concomitant]
     Indication: CHRONIC OBSTRUCTIVE PULMONARY DISEASE
     Route: 055
  5. ADVAIR DISKUS 100/50 [Concomitant]
     Indication: CHRONIC OBSTRUCTIVE PULMONARY DISEASE
     Dosage: 250/100 2 PUFFS A DAY

REACTIONS (7)
  - CHEST PAIN [None]
  - DYSPNOEA [None]
  - FLUSHING [None]
  - OESOPHAGEAL DISORDER [None]
  - PARAESTHESIA [None]
  - PHARYNGEAL ERYTHEMA [None]
  - SKIN BURNING SENSATION [None]
